FAERS Safety Report 20372366 (Version 1)
Quarter: 2022Q1

REPORT INFORMATION
  Report Type: Spontaneous
  Country: IN (occurrence: IN)
  Receive Date: 20220124
  Receipt Date: 20220124
  Transmission Date: 20220423
  Serious: Yes (Other)
  Sender: FDA-Public Use
  Company Number: IN-SUN PHARMACEUTICAL INDUSTRIES LTD-2022R1-323914

PATIENT
  Age: 50 Year
  Sex: Male

DRUGS (2)
  1. LITHIUM [Suspect]
     Active Substance: LITHIUM
     Indication: Bipolar disorder
     Dosage: 900 MILLIGRAM, DAILY
     Route: 065
  2. LITHIUM [Suspect]
     Active Substance: LITHIUM
     Indication: Affective disorder
     Dosage: 600 MILLIGRAM, DAILY
     Route: 065

REACTIONS (7)
  - Neurotoxicity [Unknown]
  - Dysdiadochokinesis [Unknown]
  - Past-pointing [Unknown]
  - Dysarthria [Unknown]
  - Oropharyngeal pain [Unknown]
  - Pruritus [Unknown]
  - Abdominal pain [Unknown]
